FAERS Safety Report 13295553 (Version 1)
Quarter: 2017Q1

REPORT INFORMATION
  Report Type: Spontaneous
  Country: IN (occurrence: IN)
  Receive Date: 20170303
  Receipt Date: 20170303
  Transmission Date: 20170428
  Serious: Yes (Other)
  Sender: FDA-Public Use
  Company Number: PHHY2017IN033170

PATIENT
  Age: 14 Year
  Sex: Male

DRUGS (1)
  1. METHYLPHENIDATE. [Suspect]
     Active Substance: METHYLPHENIDATE
     Indication: ATTENTION DEFICIT/HYPERACTIVITY DISORDER
     Dosage: 15 MG/KG, QD (GRADUALLY INCREASED TO THIS DOSE)
     Route: 065

REACTIONS (3)
  - Headache [Unknown]
  - Obsessive thoughts [Unknown]
  - Obsessive-compulsive symptom [Recovered/Resolved]
